FAERS Safety Report 9863967 (Version 4)
Quarter: 2014Q2

REPORT INFORMATION
  Report Type: Report from Study
  Country: US (occurrence: US)
  Receive Date: 20140203
  Receipt Date: 20140408
  Transmission Date: 20141212
  Serious: Yes (Hospitalization)
  Sender: FDA-Public Use
  Company Number: PHEH2013US026410

PATIENT
  Age: 6 Year
  Sex: Female
  Weight: 20.5 kg

DRUGS (3)
  1. ILARIS [Suspect]
     Indication: JUVENILE IDIOPATHIC ARTHRITIS
     Dosage: 75 MG, MONTHLY
     Route: 058
     Dates: start: 201309
  2. ILARIS [Suspect]
     Dosage: 120 MG, EVERY 4 WEEKS
     Route: 058
     Dates: end: 20140205
  3. ILARIS [Suspect]
     Dosage: 150 MG MONTHLY
     Route: 058

REACTIONS (8)
  - Thrombocytopenia [Recovering/Resolving]
  - Epistaxis [Recovering/Resolving]
  - Platelet count decreased [Recovering/Resolving]
  - Arthralgia [Unknown]
  - Visual impairment [Unknown]
  - Pyrexia [Unknown]
  - Inappropriate schedule of drug administration [Unknown]
  - Drug ineffective [Unknown]
